FAERS Safety Report 7744110-X (Version None)
Quarter: 2011Q3

REPORT INFORMATION
  Report Type: 
  Country: None (occurrence: None)
  Receive Date: 20110912
  Receipt Date: 20110907
  Transmission Date: 20111222
  Serious: Yes (Death)
  Sender: FDA-Public Use
  Company Number: EC-BAXTER-2011BH028367

PATIENT
  Sex: Female

DRUGS (3)
  1. BUMINATE 25% [Suspect]
     Route: 042
     Dates: start: 20110828, end: 20110828
  2. BUMINATE 25% [Suspect]
     Route: 042
     Dates: start: 20110829, end: 20110829
  3. BUMINATE 25% [Suspect]
     Indication: BLOOD ALBUMIN DECREASED
     Route: 042
     Dates: start: 20110827, end: 20110827

REACTIONS (3)
  - PYREXIA [None]
  - CHILLS [None]
  - DEATH [None]
